FAERS Safety Report 5060289-5 (Version None)
Quarter: 2006Q3

REPORT INFORMATION
  Report Type: 
  Country: None (occurrence: None)
  Receive Date: 20060720
  Receipt Date: 20060712
  Transmission Date: 20061208
  Serious: Yes (Death, Life-Threatening, Hospitalization)
  Sender: FDA-Public Use
  Company Number: 430005E06DEU

PATIENT
  Age: 70 Year
  Sex: Male

DRUGS (5)
  1. NOVANTRONE [Suspect]
     Indication: ACUTE MYELOID LEUKAEMIA
     Dosage: INTRAVENOUS
     Route: 042
     Dates: start: 20051126, end: 20051128
  2. GEMTUZUMAB OZOGAMICIN [Suspect]
     Dosage: 12.18 MG, ONCE
     Dates: start: 20051110
  3. CYTARABINE [Suspect]
     Dosage: INTRAVENOUS
     Dates: start: 20051122, end: 20051130
  4. ETOPOSIDE [Suspect]
     Dosage: INTRAVENOUS
     Route: 042
     Dates: start: 20051122, end: 20051124
  5. RAMIPRIL [Concomitant]

REACTIONS (5)
  - ACUTE MYOCARDIAL INFARCTION [None]
  - BLOOD LACTATE DEHYDROGENASE INCREASED [None]
  - ELECTROCARDIOGRAM ST SEGMENT DEPRESSION [None]
  - SEPSIS [None]
  - VENTRICULAR TACHYCARDIA [None]
